FAERS Safety Report 20827531 (Version 1)
Quarter: 2022Q2

REPORT INFORMATION
  Report Type: Spontaneous
  Country: US (occurrence: None)
  Receive Date: 20220513
  Receipt Date: 20220513
  Transmission Date: 20220721
  Serious: Yes (Other)
  Sender: FDA-Public Use
  Company Number: None

PATIENT
  Age: 75 Year
  Sex: Male

DRUGS (1)
  1. ABIRATERONE [Suspect]
     Active Substance: ABIRATERONE
     Indication: Prostate cancer
     Dosage: 750 MG DAILY ORAL??- ON HOLD?
     Route: 048
     Dates: start: 202111

REACTIONS (2)
  - Therapy interrupted [None]
  - Hepatic enzyme increased [None]

NARRATIVE: CASE EVENT DATE: 20220429
